FAERS Safety Report 4690569-4 (Version None)
Quarter: 2005Q2

REPORT INFORMATION
  Report Type: 
  Country: None (occurrence: None)
  Receive Date: 20050614
  Receipt Date: 20050614
  Transmission Date: 20051028
  Serious: No
  Sender: FDA-Public Use
  Company Number: None

PATIENT
  Age: 72 Year
  Sex: Female
  Weight: 126.5536 kg

DRUGS (8)
  1. BEXTRA [Suspect]
     Indication: ARTHRALGIA
  2. BEXTRA [Suspect]
     Indication: ARTHRITIS
  3. HUMULIN [Concomitant]
  4. METEPROLOL [Concomitant]
  5. AVALIDE [Concomitant]
  6. KLOR-CON [Concomitant]
  7. NEXIUM [Concomitant]
  8. LASIX [Concomitant]

REACTIONS (2)
  - DERMATITIS BULLOUS [None]
  - DERMATITIS EXFOLIATIVE [None]
